FAERS Safety Report 8163762-6 (Version None)
Quarter: 2012Q1

REPORT INFORMATION
  Report Type: 
  Country: None (occurrence: None)
  Receive Date: 20120224
  Receipt Date: 20120220
  Transmission Date: 20120608
  Serious: Yes (Other)
  Sender: FDA-Public Use
  Company Number: PHHY2012JP015431

PATIENT

DRUGS (8)
  1. ADRENAL CORTEX EXTRACT INJ [Concomitant]
     Dosage: UNK UKN, UNK
  2. FAMOTIDINE [Concomitant]
     Dosage: UNK UKN, UNK
  3. CANDESARTAN CILEXETIL [Concomitant]
     Dosage: UNK UKN, UNK
     Route: 048
  4. NEORAL [Suspect]
     Dosage: UNK UKN, UNK
  5. NEORAL [Suspect]
     Indication: INTERSTITIAL LUNG DISEASE
     Dosage: 150 MG, UNK
     Route: 048
  6. NEORAL [Suspect]
     Dosage: 200 MG, UNK
     Route: 048
  7. JUVELA [Concomitant]
     Dosage: UNK UKN, UNK
  8. ALENDRONATE SODIUM [Concomitant]
     Dosage: UNK UKN, UNK
     Route: 048

REACTIONS (1)
  - PANCYTOPENIA [None]
